FAERS Safety Report 9814030 (Version 1)
Quarter: 2014Q1

REPORT INFORMATION
  Report Type: Spontaneous
  Country: US (occurrence: US)
  Receive Date: 20140113
  Receipt Date: 20140113
  Transmission Date: 20141002
  Serious: Yes (Hospitalization)
  Sender: FDA-Public Use
  Company Number: US-MALLINCKRODT-T201305211

PATIENT
  Age: 61 Year
  Sex: Female

DRUGS (6)
  1. GABLOFEN [Suspect]
     Indication: PAIN
     Dosage: 99.9 MCG/DAY, UNK
     Route: 037
     Dates: start: 20131218, end: 201312
  2. GABLOFEN [Suspect]
     Indication: RADICULITIS BRACHIAL
  3. DILAUDID [Suspect]
     Indication: PAIN
     Dosage: 249.76 MCG/DAY
     Route: 037
     Dates: start: 20131218, end: 201312
  4. DILAUDID [Suspect]
     Indication: RADICULITIS BRACHIAL
  5. BUPIVACAINE [Suspect]
     Indication: PAIN
     Dosage: 6.8933 MG/DAY
     Route: 037
  6. BUPIVACAINE [Suspect]
     Indication: RADICULITIS BRACHIAL

REACTIONS (3)
  - Respiratory failure [Recovered/Resolved]
  - Hypotension [Recovered/Resolved]
  - Hyporesponsive to stimuli [Recovered/Resolved]
